FAERS Safety Report 24193787 (Version 1)
Quarter: 2024Q3

REPORT INFORMATION
  Report Type: Other
  Country: KR (occurrence: KR)
  Receive Date: 20240809
  Receipt Date: 20240809
  Transmission Date: 20241017
  Serious: Yes (Life-Threatening, Hospitalization, Other)
  Sender: NUVO PHARMACEUTICALS
  Company Number: KR-Nuvo Pharmaceuticals Inc-2160228

PATIENT
  Age: 38 Year
  Sex: Male

DRUGS (9)
  1. POLYETHYLENE GLYCOL 3350 [Suspect]
     Active Substance: POLYETHYLENE GLYCOL 3350
     Indication: Bowel preparation
     Route: 065
  2. INSULIN DEGLUDEC [Concomitant]
     Active Substance: INSULIN DEGLUDEC
     Route: 058
  3. PROBIOTICS NOS [Concomitant]
     Active Substance: PROBIOTICS NOS
     Route: 065
  4. TRIMEBUTINE [Concomitant]
     Active Substance: TRIMEBUTINE
     Route: 048
  5. ATORVASTATIN [Concomitant]
     Active Substance: ATORVASTATIN
     Route: 048
  6. CARVEDILOL [Concomitant]
     Active Substance: CARVEDILOL
     Route: 065
  7. AMLODIPINE [Concomitant]
     Active Substance: AMLODIPINE BESYLATE
     Route: 048
  8. REPAGLINIDE [Concomitant]
     Active Substance: REPAGLINIDE
     Route: 048
  9. LINAGLIPTIN [Concomitant]
     Active Substance: LINAGLIPTIN
     Route: 048

REACTIONS (2)
  - Pharyngeal perforation [Recovered/Resolved]
  - Vomiting [Recovered/Resolved]
